FAERS Safety Report 17367828 (Version 1)
Quarter: 2020Q1

REPORT INFORMATION
  Report Type: Spontaneous
  Country: CA (occurrence: CA)
  Receive Date: 20200204
  Receipt Date: 20200204
  Transmission Date: 20200409
  Serious: Yes (Other)
  Sender: FDA-Public Use
  Company Number: CA-ASTRAZENECA-2020SE15796

PATIENT
  Age: 61 Year
  Sex: Female

DRUGS (2)
  1. LYNPARZA [Suspect]
     Active Substance: OLAPARIB
     Indication: OVARIAN CANCER
     Dosage: 300MG TWO TIMES A DAY MORNING AND EVENING
     Route: 048
     Dates: start: 201909
  2. LYRICA [Interacting]
     Active Substance: PREGABALIN
     Indication: NEURALGIA
     Dosage: UNKNOWN
     Route: 065

REACTIONS (5)
  - Nausea [Unknown]
  - Brain neoplasm benign [Unknown]
  - Neuralgia [Unknown]
  - Fatigue [Unknown]
  - Drug interaction [Unknown]
